FAERS Safety Report 6355572-7 (Version None)
Quarter: 2009Q3

REPORT INFORMATION
  Report Type: 
  Country: None (occurrence: None)
  Receive Date: 20090914
  Receipt Date: 20090908
  Transmission Date: 20100115
  Serious: Yes (Other)
  Sender: FDA-Public Use
  Company Number: US-AMGEN-KDL343966

PATIENT
  Sex: Female
  Weight: 56.8 kg

DRUGS (8)
  1. PROCRIT [Suspect]
     Indication: ANAEMIA
     Route: 058
     Dates: start: 20080715, end: 20090205
  2. RIBAVIRIN [Suspect]
     Route: 048
     Dates: start: 20080621, end: 20090501
  3. PEG-INTRON [Concomitant]
     Dates: start: 20080621, end: 20090501
  4. IRON [Concomitant]
     Route: 048
  5. CENTRUM SILVER [Concomitant]
     Route: 048
  6. TRIAMTERENE AND HYDROCHLOROTHIAZIDE [Concomitant]
     Route: 048
  7. HYDROXYZINE [Concomitant]
  8. MECLIZINE HCL [Concomitant]

REACTIONS (3)
  - DECREASED APPETITE [None]
  - DEPRESSION [None]
  - THERAPEUTIC RESPONSE DECREASED [None]
